FAERS Safety Report 5864498-4 (Version None)
Quarter: 2008Q3

REPORT INFORMATION
  Report Type: 
  Country: None (occurrence: None)
  Receive Date: 20080829
  Receipt Date: 20080806
  Transmission Date: 20090109
  Serious: No
  Sender: FDA-Public Use
  Company Number: US-ABBOTT-08P-163-0461253-00

PATIENT

DRUGS (12)
  1. SIMCOR [Suspect]
     Indication: BLOOD CHOLESTEROL INCREASED
     Route: 048
     Dates: start: 20080415
  2. SIMCOR [Suspect]
     Dosage: FREQUENCY DECREASED
  3. FENOFIBRATE [Concomitant]
     Indication: DRUG USE FOR UNKNOWN INDICATION
  4. PRIMIDONE [Concomitant]
     Indication: DRUG USE FOR UNKNOWN INDICATION
  5. ATENOLOL [Concomitant]
     Indication: BLOOD PRESSURE
  6. TOLTERODINE TARTRATE [Concomitant]
     Indication: URINARY INCONTINENCE
  7. CITALOPRAM HYDROBROMIDE [Concomitant]
     Indication: DEPRESSION
  8. OMEPRAZOLE MAGNESIUM [Concomitant]
     Indication: GASTROOESOPHAGEAL REFLUX DISEASE
  9. ACTIPLUS [Concomitant]
     Indication: GASTROOESOPHAGEAL REFLUX DISEASE
     Dosage: 15/500, DAILY
  10. BUMETANIDE [Concomitant]
     Indication: CARDIAC FAILURE CONGESTIVE
  11. FISH OIL [Concomitant]
     Indication: SUPPLEMENTATION THERAPY
  12. ALPRAZOLAM [Concomitant]
     Indication: ANXIETY

REACTIONS (3)
  - BACK PAIN [None]
  - BLOOD GLUCOSE INCREASED [None]
  - HEADACHE [None]
